FAERS Safety Report 4442064-5 (Version None)
Quarter: 2004Q3

REPORT INFORMATION
  Report Type: 
  Country: None (occurrence: None)
  Receive Date: 20040903
  Receipt Date: 20040505
  Transmission Date: 20050211
  Serious: Yes (Hospitalization)
  Sender: FDA-Public Use
  Company Number: 2004UW07638

PATIENT
  Age: 61 Year
  Sex: Male
  Weight: 107.9561 kg

DRUGS (5)
  1. CRESTOR [Suspect]
     Indication: BLOOD CHOLESTEROL INCREASED
     Dosage: 10 MG QD PO
     Route: 048
     Dates: start: 20040203, end: 20040412
  2. PROTONIX [Concomitant]
  3. LISINOPRIL [Concomitant]
  4. GLUCOVANCE [Concomitant]
  5. ACTOS [Concomitant]

REACTIONS (1)
  - PANCREATITIS [None]
